FAERS Safety Report 9094610 (Version 2)
Quarter: 2013Q1

REPORT INFORMATION
  Report Type: Spontaneous
  Country: JP (occurrence: JP)
  Receive Date: 20130204
  Receipt Date: 20130306
  Transmission Date: 20140127
  Serious: No
  Sender: FDA-Public Use
  Company Number: JP-009507513-1212JPN009240

PATIENT
  Age: 63 Year
  Sex: Male
  Weight: 70 kg

DRUGS (12)
  1. PEGINTRON [Suspect]
     Indication: CHRONIC HEPATITIS C
     Dosage: 1.5 MICROGRAM PER KILOGRAM, QW, DAILY DOSE UNKNOWN
     Route: 058
     Dates: start: 20121106, end: 20121112
  2. PEGINTRON [Suspect]
     Dosage: 1.5 MICROGRAM PER KILOGRAM, QW, DAILY DOSE UNKNOWN
     Route: 058
     Dates: start: 20121120, end: 20121127
  3. PEGINTRON [Suspect]
     Dosage: 0.71 MICROGRAM PER KILOGRAM, QW, DAILY DOSE UNKNOWN
     Route: 058
     Dates: start: 20121204
  4. REBETOL [Suspect]
     Indication: CHRONIC HEPATITIS C
     Dosage: 800 MG, QD
     Route: 048
     Dates: start: 20121106, end: 20121112
  5. REBETOL [Suspect]
     Dosage: 800 MG, QD
     Route: 048
     Dates: start: 20121120, end: 20121126
  6. REBETOL [Suspect]
     Dosage: 600 MG, QD
     Route: 048
     Dates: start: 20121127, end: 20121203
  7. REBETOL [Suspect]
     Dosage: 400 MG, QD
     Route: 048
     Dates: start: 20121204
  8. TELAVIC [Suspect]
     Indication: CHRONIC HEPATITIS C
     Dosage: 2250 MG, QD
     Route: 048
     Dates: start: 20121106, end: 20121112
  9. ACTOS [Concomitant]
     Dosage: 30 MG, QD, POR
     Route: 048
  10. JANUVIA TABLETS 50MG [Concomitant]
     Dosage: 50 MG, QD, POR
     Route: 048
  11. METGLUCO [Concomitant]
     Dosage: 750 MG, QD, POR
     Route: 048
  12. URSO [Concomitant]
     Indication: CHRONIC HEPATITIS C
     Dosage: 600 MG, QD, POR
     Route: 048
     Dates: start: 20121112, end: 20121119

REACTIONS (1)
  - Jaundice [Recovered/Resolved]
